FAERS Safety Report 25940405 (Version 1)
Quarter: 2025Q4

REPORT INFORMATION
  Report Type: Spontaneous
  Country: EU (occurrence: EU)
  Receive Date: 20251020
  Receipt Date: 20251020
  Transmission Date: 20260118
  Serious: Yes (Other)
  Sender: BAUSCH AND LOMB
  Company Number: None

PATIENT
  Age: 61 Year
  Sex: Female

DRUGS (2)
  1. PHENYLEPHRINE HYDROCHLORIDE [Suspect]
     Active Substance: PHENYLEPHRINE HYDROCHLORIDE
     Indication: Investigation
     Dosage: 1 DROPPE I B?DA ?GONEN
     Route: 065
     Dates: start: 20251006, end: 20251006
  2. TROPICAMIDE [Suspect]
     Active Substance: TROPICAMIDE
     Indication: Investigation
     Dosage: 1 DROPPE I B?DA ?GONEN
     Route: 065
     Dates: start: 20251006, end: 20251006

REACTIONS (6)
  - Erythema [Recovered/Resolved]
  - Swelling face [Recovered/Resolved]
  - Pruritus [Recovered/Resolved]
  - Dizziness [Recovered/Resolved]
  - Lymphadenopathy [Recovered/Resolved]
  - Fatigue [Recovered/Resolved]

NARRATIVE: CASE EVENT DATE: 20251006
